FAERS Safety Report 9068628 (Version 9)
Quarter: 2014Q1

REPORT INFORMATION
  Report Type: Report from Study
  Country: DE (occurrence: DE)
  Receive Date: 20130128
  Receipt Date: 20140321
  Transmission Date: 20141002
  Serious: Yes (Hospitalization)
  Sender: FDA-Public Use
  Company Number: DE-ROCHE-1180333

PATIENT
  Age: 56 Year
  Sex: Female
  Weight: 65 kg

DRUGS (15)
  1. VISMODEGIB [Suspect]
     Indication: BASAL CELL CARCINOMA
     Dosage: DATE OF LAST DOSE PRIOR TO SAE ON 14/JAN/2013?DRUG INTERRUPTED FROM 14/JAN/2013 TO 22/JAN/2013
     Route: 048
     Dates: start: 20120124, end: 20130114
  2. TILIDIN [Concomitant]
     Indication: TUMOUR PAIN
     Route: 065
     Dates: start: 20110112, end: 20130114
  3. TILIDIN [Concomitant]
     Route: 065
     Dates: start: 201101
  4. PANTOZOL (GERMANY) [Concomitant]
     Indication: PROPHYLAXIS
     Route: 065
     Dates: start: 201101
  5. DOLO VISANO M DRAGEES [Concomitant]
     Indication: SPINAL PAIN
     Route: 065
     Dates: start: 20120921
  6. OMEPRAZOLE [Concomitant]
     Indication: ABDOMINAL PAIN UPPER
     Route: 065
     Dates: start: 20120116
  7. MYOLASTAN [Concomitant]
     Indication: MUSCLE SPASMS
     Route: 065
     Dates: start: 20120116, end: 20120130
  8. ERYFLUID [Concomitant]
     Indication: ACNE
     Route: 065
     Dates: start: 20111219
  9. DESONIDE [Concomitant]
     Indication: ACNE
     Route: 065
     Dates: start: 20111219
  10. DESONIDE [Concomitant]
     Route: 065
     Dates: start: 20120116
  11. SOBELIN (CLINDAMYCIN) [Concomitant]
     Indication: INFECTION PROPHYLAXIS
     Route: 065
     Dates: start: 20130610
  12. CLEXANE [Concomitant]
     Indication: THROMBOSIS PROPHYLAXIS
     Route: 065
     Dates: start: 20130610
  13. L-THYROXIN [Concomitant]
     Indication: HYPOTHYROIDISM
     Route: 065
     Dates: start: 20120725
  14. NOVAMINSULFON [Concomitant]
     Indication: PAIN
     Route: 065
     Dates: start: 20130112, end: 20130114
  15. NOVAMINSULFON [Concomitant]
     Route: 065
     Dates: start: 20111208

REACTIONS (1)
  - Dizziness [Recovered/Resolved]
